FAERS Safety Report 25014165 (Version 1)
Quarter: 2025Q1

REPORT INFORMATION
  Report Type: Report from Study
  Country: US (occurrence: US)
  Receive Date: 20250226
  Receipt Date: 20250226
  Transmission Date: 20250409
  Serious: No
  Sender: ROCHE
  Company Number: US-ROCHE-10000066349

PATIENT
  Age: 62 Year
  Sex: Male

DRUGS (19)
  1. OCREVUS [Suspect]
     Active Substance: OCRELIZUMAB
     Indication: Relapsing-remitting multiple sclerosis
     Dosage: STRENGTH : 300 MG/ 10 ML VIAL
     Route: 042
     Dates: start: 20170507
  2. LIORESAL [Concomitant]
     Active Substance: BACLOFEN
     Dates: start: 20250123
  3. AMPYRA [Concomitant]
     Active Substance: DALFAMPRIDINE
  4. NEURONTIN [Concomitant]
     Active Substance: GABAPENTIN
     Dates: start: 20160624
  5. NEURONTIN [Concomitant]
     Active Substance: GABAPENTIN
     Dates: start: 20250123
  6. DALFAMPRIDINE [Concomitant]
     Active Substance: DALFAMPRIDINE
     Route: 048
     Dates: start: 20240719
  7. DALFAMPRIDINE [Concomitant]
     Active Substance: DALFAMPRIDINE
     Route: 048
     Dates: start: 20250122
  8. ALBUTEROL [Concomitant]
     Active Substance: ALBUTEROL
     Route: 055
     Dates: start: 20240423
  9. SEMAGLUTIDE [Concomitant]
     Active Substance: SEMAGLUTIDE
     Route: 058
  10. ROSUVASTATIN [Concomitant]
     Active Substance: ROSUVASTATIN
     Route: 048
     Dates: start: 20240209
  11. GARLIC ARIZ [Concomitant]
  12. SILDENAFIL CITRATE [Concomitant]
     Active Substance: SILDENAFIL CITRATE
     Dates: start: 20230414
  13. SILDENAFIL CITRATE [Concomitant]
     Active Substance: SILDENAFIL CITRATE
     Dates: start: 20241028
  14. TYLENOL [Concomitant]
     Active Substance: ACETAMINOPHEN
  15. VITAMIN D3 [Concomitant]
     Active Substance: CHOLECALCIFEROL
  16. ADVAIR HFA [Concomitant]
     Active Substance: FLUTICASONE PROPIONATE\SALMETEROL XINAFOATE
     Dates: start: 20240403
  17. CRESTOR [Concomitant]
     Active Substance: ROSUVASTATIN CALCIUM
     Dates: start: 20240209
  18. DEPO-TESTOSTERONE [Concomitant]
     Active Substance: TESTOSTERONE CYPIONATE
  19. TETRAHYDROZOLINE HYDROCHLORIDE [Concomitant]
     Active Substance: TETRAHYDROZOLINE HYDROCHLORIDE

REACTIONS (5)
  - Asthma [Unknown]
  - Hyperlipidaemia [Unknown]
  - Glucose tolerance impaired [Unknown]
  - Tachycardia [Unknown]
  - Demyelination [Unknown]
